FAERS Safety Report 15458633 (Version 1)
Quarter: 2018Q4

REPORT INFORMATION
  Report Type: Spontaneous
  Country: GB (occurrence: DE)
  Receive Date: 20181003
  Receipt Date: 20181003
  Transmission Date: 20190204
  Serious: Yes (Other)
  Sender: FDA-Public Use
  Company Number: DE-AUROBINDO-AUR-APL-2017-07088

PATIENT
  Sex: Male

DRUGS (1)
  1. AMLODIPINE [Suspect]
     Active Substance: AMLODIPINE BESYLATE
     Indication: PRODUCT USED FOR UNKNOWN INDICATION
     Dosage: 5 MG, UNK,DAILY DOSE: 5 MG MILLIGRAM(S) EVERY DAY
     Route: 065

REACTIONS (4)
  - Inflammation [Unknown]
  - Hyperplasia [Unknown]
  - Noninfective gingivitis [Unknown]
  - Dry mouth [Unknown]
